FAERS Safety Report 7676181-3 (Version None)
Quarter: 2011Q3

REPORT INFORMATION
  Report Type: 
  Country: None (occurrence: None)
  Receive Date: 20110805
  Receipt Date: 20110728
  Transmission Date: 20111222
  Serious: Yes (Other)
  Sender: FDA-Public Use
  Company Number: DKLU1072229

PATIENT
  Age: 8 Month
  Sex: Female

DRUGS (5)
  1. KEPPRA [Concomitant]
  2. SABRIL [Suspect]
     Indication: INFANTILE SPASMS
     Dosage: SEE IMAGE
     Route: 048
     Dates: start: 20110307, end: 20110311
  3. SABRIL [Suspect]
     Indication: INFANTILE SPASMS
     Dosage: SEE IMAGE
     Route: 048
     Dates: start: 20110318
  4. SABRIL [Suspect]
     Indication: INFANTILE SPASMS
     Dosage: SEE IMAGE
     Route: 048
     Dates: start: 20110311, end: 20110318
  5. TOPAMAX [Concomitant]

REACTIONS (1)
  - RETINOGRAM ABNORMAL [None]
